FAERS Safety Report 5470934-8 (Version None)
Quarter: 2007Q3

REPORT INFORMATION
  Report Type: 
  Country: None (occurrence: None)
  Receive Date: 20070928
  Receipt Date: 20070921
  Transmission Date: 20080115
  Serious: Yes (Other)
  Sender: FDA-Public Use
  Company Number: JP-MERCK-0709USA01384

PATIENT
  Age: 77 Year
  Sex: Female

DRUGS (2)
  1. ZETIA [Suspect]
     Indication: HYPERCHOLESTEROLAEMIA
     Route: 048
     Dates: start: 20070827, end: 20070903
  2. OMEPRAZOLE [Concomitant]
     Route: 065

REACTIONS (1)
  - PHOTOSENSITIVITY REACTION [None]
